FAERS Safety Report 12126994 (Version 4)
Quarter: 2016Q2

REPORT INFORMATION
  Report Type: Spontaneous
  Country: US (occurrence: US)
  Receive Date: 20160229
  Receipt Date: 20160405
  Transmission Date: 20160815
  Serious: Yes (Hospitalization, Other)
  Sender: FDA-Public Use
  Company Number: US-SANKYOGER-DSU-2009-00415

PATIENT

DRUGS (16)
  1. HYDROCHLOROTHIAZIDE. [Suspect]
     Active Substance: HYDROCHLOROTHIAZIDE
     Indication: HYPERTENSION
     Dosage: UNK
     Route: 048
     Dates: start: 20080324, end: 20080917
  2. TRILEPTAL [Concomitant]
     Active Substance: OXCARBAZEPINE
     Indication: EPILEPSY
     Dosage: 600 MG, ONCE EVERY 3 D
     Route: 048
     Dates: start: 20080205
  3. ANDROGEL [Concomitant]
     Active Substance: TESTOSTERONE
     Indication: HYPOGONADISM
     Dosage: UNK UNK, QD (APPLY TO SKIN DAILY)
     Route: 061
     Dates: start: 20080205
  4. PREVACID [Concomitant]
     Active Substance: LANSOPRAZOLE
     Indication: GASTROOESOPHAGEAL REFLUX DISEASE
     Dosage: 30 MG, QD (EVERY MORNING)
     Route: 048
     Dates: start: 20080205
  5. BENICAR HCT [Suspect]
     Active Substance: HYDROCHLOROTHIAZIDE\OLMESARTAN MEDOXOMIL
     Indication: HYPERTENSION
     Dosage: 40/25 MG, QD (EVERY MORNING)
     Route: 048
     Dates: start: 20080818, end: 20080917
  6. ATIVAN [Concomitant]
     Active Substance: LORAZEPAM
     Indication: ANXIETY
     Dosage: 0.5 MG, BID (PRN)
     Route: 048
     Dates: start: 20080228
  7. TRICOR                             /00499301/ [Concomitant]
     Indication: HYPERTRIGLYCERIDAEMIA
     Dosage: 145 MG, QD
     Route: 048
     Dates: start: 20080205
  8. SELZENTRY [Concomitant]
     Active Substance: MARAVIROC
     Indication: ACQUIRED IMMUNODEFICIENCY SYNDROME
     Dosage: UNK
     Dates: start: 20080709
  9. VITAMIN B12 [Concomitant]
     Active Substance: CYANOCOBALAMIN
     Indication: ANAEMIA
     Dosage: UNK
     Route: 058
     Dates: start: 20080205
  10. ISENTRESS [Concomitant]
     Active Substance: RALTEGRAVIR POTASSIUM
     Indication: ACQUIRED IMMUNODEFICIENCY SYNDROME
     Dosage: UNK
     Dates: start: 20080709
  11. ALLEGRA [Concomitant]
     Active Substance: FEXOFENADINE HYDROCHLORIDE
     Indication: RHINITIS ALLERGIC
     Dosage: 180 MG, QD (PRN)
     Route: 048
     Dates: start: 20080205
  12. ASPIRIN                            /00002701/ [Concomitant]
     Active Substance: ASPIRIN
     Indication: CEREBRAL ARTERIOSCLEROSIS
     Dosage: 81 MG, QD
     Route: 048
     Dates: start: 20080205
  13. SELZENTRY [Concomitant]
     Active Substance: MARAVIROC
     Dosage: 150 MG, BID
     Dates: start: 20090605, end: 20130812
  14. CHANTIX [Concomitant]
     Active Substance: VARENICLINE TARTRATE
     Indication: PRODUCT USED FOR UNKNOWN INDICATION
     Dosage: UNK
     Dates: start: 20080205
  15. BACTRIM DS [Concomitant]
     Active Substance: SULFAMETHOXAZOLE\TRIMETHOPRIM
     Indication: PNEUMONIA
     Dosage: UNK
     Route: 048
     Dates: start: 20080205
  16. SELZENTRY [Concomitant]
     Active Substance: MARAVIROC
     Dosage: 600 MG, BID
     Dates: start: 20130813, end: 20140224

REACTIONS (5)
  - Erectile dysfunction [Not Recovered/Not Resolved]
  - Hyponatraemia [Recovered/Resolved]
  - Type 2 diabetes mellitus [Not Recovered/Not Resolved]
  - Sleep disorder [Unknown]
  - Seizure [Recovered/Resolved]

NARRATIVE: CASE EVENT DATE: 20080609
